FAERS Safety Report 10203440 (Version 1)
Quarter: 2014Q2

REPORT INFORMATION
  Report Type: Spontaneous
  Country: GB (occurrence: GB)
  Receive Date: 20140529
  Receipt Date: 20140529
  Transmission Date: 20141212
  Serious: Yes (Other)
  Sender: FDA-Public Use
  Company Number: GB-AMGEN-GBRSP2014038072

PATIENT
  Sex: Male

DRUGS (2)
  1. NPLATE [Suspect]
     Indication: PRODUCT USED FOR UNKNOWN INDICATION
     Dosage: UNK
     Route: 065
  2. ELTROMBOPAG [Concomitant]
     Dosage: UNK

REACTIONS (2)
  - Therapeutic response decreased [Unknown]
  - Platelet count decreased [Unknown]
